FAERS Safety Report 9135634 (Version 1)
Quarter: 2013Q1

REPORT INFORMATION
  Report Type: Spontaneous
  Country: GB (occurrence: None)
  Receive Date: 20130130
  Receipt Date: 20130130
  Transmission Date: 20140127
  Serious: Yes (Death, Hospitalization, Other)
  Sender: FDA-Public Use
  Company Number: AUR-APL-2013-00964

PATIENT
  Sex: Male

DRUGS (4)
  1. CITALOPRAM (CITALOPRAM) [Suspect]
     Indication: PRODUCT USED FOR UNKNOWN INDICATION
     Dosage: UNKNOWN
  2. RISPERDAL CONSTA [Suspect]
     Indication: PRODUCT USED FOR UNKNOWN INDICATION
     Dosage: (1 DOSAGE FORMS, 1 IN 2 WK), INTRAMUSCULAR
     Route: 030
  3. BENDROFLUMETHIAZIDE [Concomitant]
  4. RAMIPRIL (RAMIPRIL) [Concomitant]

REACTIONS (7)
  - Suicidal ideation [None]
  - Suicide attempt [None]
  - Dyspnoea [None]
  - Circulatory collapse [None]
  - Completed suicide [None]
  - Depressed mood [None]
  - Weight increased [None]
